FAERS Safety Report 4820760-5 (Version None)
Quarter: 2005Q4

REPORT INFORMATION
  Report Type: 
  Country: None (occurrence: None)
  Receive Date: 20051104
  Receipt Date: 20050722
  Transmission Date: 20060501
  Serious: Yes (Other)
  Sender: FDA-Public Use
  Company Number: US-MERCK-0507USA03860

PATIENT
  Age: 53 Year
  Sex: Female
  Weight: 105 kg

DRUGS (36)
  1. FUROSEMIDE [Concomitant]
     Indication: OEDEMA
     Route: 065
     Dates: start: 20030516, end: 20041001
  2. GENTAMICIN [Concomitant]
     Route: 065
     Dates: start: 20030413
  3. HYOSCYAMINE [Concomitant]
     Indication: BLADDER DISORDER
     Route: 065
     Dates: start: 20010719
  4. IBUPROFEN [Concomitant]
     Indication: PAIN
     Route: 065
     Dates: start: 20010907
  5. K-DUR 10 [Concomitant]
     Indication: MINERAL SUPPLEMENTATION
     Route: 065
     Dates: start: 20010731
  6. LITHIUM CARBONATE [Concomitant]
     Indication: DEPRESSION
     Route: 065
     Dates: start: 20030519
  7. LOTRISONE [Concomitant]
     Indication: SKIN DISORDER
     Route: 065
     Dates: start: 20030211
  8. METRONIDAZOLE [Concomitant]
     Indication: URINARY TRACT INFECTION
     Route: 065
     Dates: start: 20030117
  9. MYCOSTATIN [Concomitant]
     Indication: SKIN INFECTION
     Route: 065
     Dates: start: 20010718
  10. NEXIUM [Concomitant]
     Indication: GASTRIC DISORDER
     Route: 065
     Dates: start: 20030627
  11. NUTRACORT [Concomitant]
     Indication: RASH
     Route: 065
     Dates: start: 20010718
  12. ESTRADIOL;NORGESTIMATE [Concomitant]
     Indication: HORMONE REPLACEMENT THERAPY
     Route: 065
     Dates: start: 20010712
  13. PAXIL [Concomitant]
     Indication: DEPRESSION
     Route: 065
     Dates: start: 20030211
  14. PENTAZOCINE [Concomitant]
     Route: 065
     Dates: start: 20010907
  15. PREVACID [Concomitant]
     Indication: GASTRIC DISORDER
     Route: 065
     Dates: start: 19990727
  16. RISPERDAL [Concomitant]
     Route: 065
     Dates: start: 20021028
  17. SPECTAZOLE [Concomitant]
     Indication: RASH
     Route: 065
     Dates: start: 20010718
  18. TOPROL-XL [Concomitant]
     Indication: BLOOD PRESSURE
     Route: 065
     Dates: start: 20031208
  19. TRIAMTERENE [Concomitant]
     Indication: OEDEMA
     Route: 065
     Dates: start: 20010729
  20. URSODIOL [Concomitant]
     Indication: GASTRIC DISORDER
     Route: 065
     Dates: start: 20010806
  21. WELLBUTRIN [Concomitant]
     Indication: DEPRESSION
     Route: 065
     Dates: start: 20010622
  22. ESTRADIOL;NORGESTIMATE [Concomitant]
     Route: 065
     Dates: start: 20031230, end: 20040801
  23. KLONOPIN [Concomitant]
     Route: 065
  24. VIOXX [Suspect]
     Indication: OSTEOARTHRITIS
     Route: 048
     Dates: start: 20010723, end: 20021114
  25. VIOXX [Suspect]
     Route: 048
     Dates: start: 20030101, end: 20040923
  26. ABILIFY [Concomitant]
     Indication: BIPOLAR DISORDER
     Route: 065
     Dates: start: 20040806
  27. AMBIEN [Concomitant]
     Indication: BIPOLAR DISORDER
     Route: 065
     Dates: start: 19951229
  28. AUGMENTIN '125' [Concomitant]
     Route: 065
     Dates: start: 20020225
  29. CEPHALEXIN [Concomitant]
     Indication: COUGH
     Route: 065
     Dates: start: 20040405
  30. BEXTRA [Concomitant]
     Route: 065
     Dates: start: 20021212
  31. CLONAZEPAM [Concomitant]
     Indication: SLEEP DISORDER
     Route: 065
     Dates: start: 19961223
  32. CLOTRIMAZOLE [Concomitant]
     Indication: FUNGAL INFECTION
     Route: 065
     Dates: start: 20040719
  33. COZAAR [Concomitant]
     Indication: BLOOD PRESSURE
     Route: 065
     Dates: start: 19990513, end: 20041001
  34. CYANOCOBALAMIN [Concomitant]
     Route: 065
     Dates: start: 20010921
  35. DICYCLOMINE HYDROCHLORIDE [Concomitant]
     Indication: IRRITABLE BOWEL SYNDROME
     Route: 065
     Dates: start: 20030211
  36. FLUOXETINE [Concomitant]
     Indication: DEPRESSION
     Route: 065
     Dates: start: 20010830

REACTIONS (17)
  - ANXIETY [None]
  - CEREBROVASCULAR ACCIDENT [None]
  - DERMATITIS [None]
  - DIAPHRAGMATIC HERNIA [None]
  - DIVERTICULITIS [None]
  - DIVERTICULUM [None]
  - DRUG INEFFECTIVE [None]
  - FIBROMYALGIA [None]
  - GASTROOESOPHAGEAL REFLUX DISEASE [None]
  - HYPERTENSION [None]
  - HYPOTHYROIDISM [None]
  - INSOMNIA [None]
  - IRRITABLE BOWEL SYNDROME [None]
  - MUSCLE SPASMS [None]
  - PARAESTHESIA [None]
  - RESTLESS LEGS SYNDROME [None]
  - SLEEP APNOEA SYNDROME [None]
